FAERS Safety Report 6081234-X (Version None)
Quarter: 2009Q1

REPORT INFORMATION
  Report Type: 
  Country: None (occurrence: None)
  Receive Date: 20090213
  Receipt Date: 20090130
  Transmission Date: 20090719
  Serious: Yes (Hospitalization)
  Sender: FDA-Public Use
  Company Number: 2009000296

PATIENT
  Age: 71 Year
  Sex: Male

DRUGS (6)
  1. ERLOTINIB (ERLOTINIB) (TABLET) (ERLOTINIB) [Suspect]
     Indication: ADENOCARCINOMA PANCREAS
     Dosage: (100 MG, QD), ORAL
     Route: 048
     Dates: start: 20081112, end: 20090109
  2. GEMCITABINE [Suspect]
     Indication: ADENOCARCINOMA PANCREAS
     Dosage: (1000 MG/M2, Q3W), INTRAVENOUS
     Route: 042
     Dates: start: 20081112, end: 20090109
  3. ENALAPRIL MALEATE [Concomitant]
  4. CLOPIDOGREL [Concomitant]
  5. PRAVASTATINA [Concomitant]
  6. METFORMINA [Concomitant]

REACTIONS (2)
  - BILE DUCT OBSTRUCTION [None]
  - DISEASE PROGRESSION [None]
